FAERS Safety Report 12599629 (Version 3)
Quarter: 2016Q4

REPORT INFORMATION
  Report Type: Spontaneous
  Country: US (occurrence: US)
  Receive Date: 20160727
  Receipt Date: 20161213
  Transmission Date: 20170207
  Serious: Yes (Hospitalization)
  Sender: FDA-Public Use
  Company Number: GXBR2016US002321

PATIENT
  Sex: Female
  Weight: 83.9 kg

DRUGS (1)
  1. GLATOPA [Suspect]
     Active Substance: GLATIRAMER ACETATE
     Indication: PRODUCT USED FOR UNKNOWN INDICATION
     Dosage: 20 MG, QD
     Route: 065
     Dates: start: 20160401

REACTIONS (9)
  - Occipital neuralgia [Unknown]
  - Malaise [Recovering/Resolving]
  - Multiple sclerosis relapse [Unknown]
  - Tooth abscess [Unknown]
  - Trigeminal neuralgia [Unknown]
  - Influenza like illness [Recovering/Resolving]
  - Diplopia [Unknown]
  - Fall [Unknown]
  - Dizziness [Unknown]
